FAERS Safety Report 9993611 (Version 2)
Quarter: 2014Q1

REPORT INFORMATION
  Report Type: Spontaneous
  Country: IE (occurrence: IE)
  Receive Date: 20140310
  Receipt Date: 20140310
  Transmission Date: 20141002
  Serious: Yes (Other)
  Sender: FDA-Public Use
  Company Number: PHFR2013IE007061

PATIENT
  Age: 50 Year
  Sex: Female

DRUGS (7)
  1. CLOZARIL [Suspect]
     Indication: SCHIZOPHRENIA, PARANOID TYPE
     Dosage: 350 MG
     Route: 048
     Dates: start: 2004
  2. CLOZARIL [Suspect]
     Indication: SCHIZOPHRENIA
     Dosage: UNK
     Route: 048
     Dates: start: 20061117, end: 2012
  3. TRIMETHOPRIM [Suspect]
     Indication: URINARY TRACT INFECTION
     Dosage: 200 MG, BID, TWICE DAILY
     Route: 048
     Dates: start: 20121121, end: 20121126
  4. GLUCOPHAGE [Concomitant]
     Dosage: 500 UKN, BID
  5. ELTROXIN [Concomitant]
     Dosage: 150 UG, QD
  6. ARIPIPRAZOLE [Concomitant]
     Dosage: UNK
  7. RISPERIDONE [Concomitant]
     Dosage: UNK

REACTIONS (5)
  - Type 2 diabetes mellitus [Not Recovered/Not Resolved]
  - White blood cell count decreased [Recovered/Resolved]
  - Neutrophil count decreased [Recovered/Resolved]
  - Nasopharyngitis [Recovered/Resolved]
  - Malaise [Recovered/Resolved]
